FAERS Safety Report 22015002 (Version 6)
Quarter: 2023Q4

REPORT INFORMATION
  Report Type: Report from Study
  Country: US (occurrence: US)
  Receive Date: 20230221
  Receipt Date: 20231006
  Transmission Date: 20240109
  Serious: Yes (Life-Threatening, Hospitalization)
  Sender: FDA-Public Use
  Company Number: US-SA-SAC20230220000359

PATIENT
  Age: 69 Year
  Sex: Female
  Weight: 64 kg

DRUGS (61)
  1. OXALIPLATIN [Suspect]
     Active Substance: OXALIPLATIN
     Indication: Colorectal cancer metastatic
     Dosage: 141 MG
     Route: 042
     Dates: start: 20220831, end: 20220831
  2. OXALIPLATIN [Suspect]
     Active Substance: OXALIPLATIN
     Dosage: 112 MG, 1X
     Route: 042
     Dates: start: 20220929, end: 20220929
  3. OXALIPLATIN [Suspect]
     Active Substance: OXALIPLATIN
     Dosage: 85 MG, 1X
     Route: 042
     Dates: start: 20221019, end: 20221019
  4. OXALIPLATIN [Suspect]
     Active Substance: OXALIPLATIN
     Dosage: 57.5 MG, 1X
     Route: 042
     Dates: start: 20221109, end: 20221109
  5. OXALIPLATIN [Suspect]
     Active Substance: OXALIPLATIN
     Dosage: 57.5 MG, 1X
     Route: 042
     Dates: start: 20221130, end: 20221130
  6. OXALIPLATIN [Suspect]
     Active Substance: OXALIPLATIN
     Dosage: 57.5 MG, 1X
     Route: 042
     Dates: start: 20221214, end: 20221214
  7. OXALIPLATIN [Suspect]
     Active Substance: OXALIPLATIN
     Dosage: 57.5 MG, 1X
     Route: 042
     Dates: start: 20221228, end: 20221228
  8. OXALIPLATIN [Suspect]
     Active Substance: OXALIPLATIN
     Dosage: 57.5 MG, 1X
     Route: 042
     Dates: start: 20230111, end: 20230111
  9. BEVACIZUMAB [Suspect]
     Active Substance: BEVACIZUMAB
     Indication: Colorectal cancer
     Dosage: 317 MG, 1X
     Route: 042
     Dates: start: 20220831, end: 20220831
  10. BEVACIZUMAB [Suspect]
     Active Substance: BEVACIZUMAB
     Dosage: 317 MG, 1X
     Route: 042
     Dates: start: 20220929, end: 20220929
  11. BEVACIZUMAB [Suspect]
     Active Substance: BEVACIZUMAB
     Dosage: 300 MG, 1X
     Route: 042
     Dates: start: 20221019, end: 20221019
  12. BEVACIZUMAB [Suspect]
     Active Substance: BEVACIZUMAB
     Dosage: 300 MG, 1X
     Route: 042
     Dates: start: 20221109, end: 20221109
  13. BEVACIZUMAB [Suspect]
     Active Substance: BEVACIZUMAB
     Dosage: 300 MG, 1X
     Route: 042
     Dates: start: 20221130, end: 20221130
  14. BEVACIZUMAB [Suspect]
     Active Substance: BEVACIZUMAB
     Dosage: 300 MG, 1X
     Route: 042
     Dates: start: 20221214, end: 20221214
  15. BEVACIZUMAB [Suspect]
     Active Substance: BEVACIZUMAB
     Dosage: 300 MG, 1X
     Route: 042
     Dates: start: 20221228, end: 20221228
  16. BEVACIZUMAB [Suspect]
     Active Substance: BEVACIZUMAB
     Dosage: 300 MG, 1X
     Route: 042
     Dates: start: 20230111, end: 20230111
  17. LEUCOVORIN [Suspect]
     Active Substance: LEUCOVORIN\LEUCOVORIN CALCIUM
     Indication: Colorectal cancer
     Dosage: 400 MG, 1X
     Route: 042
     Dates: start: 20220831, end: 20220831
  18. LEUCOVORIN [Suspect]
     Active Substance: LEUCOVORIN\LEUCOVORIN CALCIUM
     Dosage: 99 MG, 1X
     Route: 042
     Dates: start: 20220929, end: 20220929
  19. LEUCOVORIN [Suspect]
     Active Substance: LEUCOVORIN\LEUCOVORIN CALCIUM
     Dosage: 99 MG, 1X
     Route: 042
     Dates: start: 20221019, end: 20221019
  20. LEUCOVORIN [Suspect]
     Active Substance: LEUCOVORIN\LEUCOVORIN CALCIUM
     Dosage: 99 MG, 1X
     Route: 042
     Dates: start: 20221109, end: 20221109
  21. FLUOROURACIL [Suspect]
     Active Substance: FLUOROURACIL
     Indication: Colorectal cancer
     Dosage: 664 MG
     Route: 042
     Dates: start: 20220831, end: 20220831
  22. FLUOROURACIL [Suspect]
     Active Substance: FLUOROURACIL
     Dosage: 3984 MG, 1X
     Route: 042
     Dates: start: 20220831, end: 20220831
  23. FLUOROURACIL [Suspect]
     Active Substance: FLUOROURACIL
     Dosage: 531 MG, 1X
     Route: 042
     Dates: start: 20220929, end: 20220929
  24. FLUOROURACIL [Suspect]
     Active Substance: FLUOROURACIL
     Dosage: 3187 MG, 1X
     Route: 042
     Dates: start: 20220929, end: 20220929
  25. FLUOROURACIL [Suspect]
     Active Substance: FLUOROURACIL
     Dosage: 400 MG, 1X
     Route: 042
     Dates: start: 20221019, end: 20221019
  26. FLUOROURACIL [Suspect]
     Active Substance: FLUOROURACIL
     Dosage: 2400 MG, 1X
     Route: 042
     Dates: start: 20221019, end: 20221019
  27. FLUOROURACIL [Suspect]
     Active Substance: FLUOROURACIL
     Dosage: 265 MG, 1X
     Route: 042
     Dates: start: 20221109, end: 20221109
  28. FLUOROURACIL [Suspect]
     Active Substance: FLUOROURACIL
     Dosage: 1600 MG, 1X
     Route: 042
     Dates: start: 20221109, end: 20221109
  29. FLUOROURACIL [Suspect]
     Active Substance: FLUOROURACIL
     Dosage: 1600 MG, 1X
     Route: 042
     Dates: start: 20221130, end: 20221130
  30. FLUOROURACIL [Suspect]
     Active Substance: FLUOROURACIL
     Dosage: 1600 MG, 1X
     Route: 042
     Dates: start: 20221214, end: 20221214
  31. FLUOROURACIL [Suspect]
     Active Substance: FLUOROURACIL
     Dosage: 1600 MG, 1X
     Route: 042
     Dates: start: 20221228, end: 20221228
  32. FLUOROURACIL [Suspect]
     Active Substance: FLUOROURACIL
     Dosage: 1600 MG, 1X
     Route: 042
     Dates: start: 20230111, end: 20230111
  33. ZIMBERELIMAB [Suspect]
     Active Substance: ZIMBERELIMAB
     Indication: Colorectal cancer metastatic
     Dosage: 480 MG
     Route: 042
     Dates: start: 20220831, end: 20220831
  34. ZIMBERELIMAB [Suspect]
     Active Substance: ZIMBERELIMAB
     Dosage: 480 MG
     Route: 042
     Dates: start: 20221019, end: 20221019
  35. ZIMBERELIMAB [Suspect]
     Active Substance: ZIMBERELIMAB
     Dosage: 480 MG
     Route: 042
     Dates: start: 20221130, end: 20221130
  36. ZIMBERELIMAB [Suspect]
     Active Substance: ZIMBERELIMAB
     Dosage: 480 MG
     Route: 042
     Dates: start: 20221228
  37. ETRUMADENANT [Suspect]
     Active Substance: ETRUMADENANT
     Indication: Colorectal cancer metastatic
     Dosage: 150 MG
     Route: 048
     Dates: start: 20220831, end: 20220919
  38. ETRUMADENANT [Suspect]
     Active Substance: ETRUMADENANT
     Dosage: 150 MG
     Route: 048
     Dates: start: 20221019, end: 20221123
  39. ETRUMADENANT [Suspect]
     Active Substance: ETRUMADENANT
     Dosage: 150 MG
     Route: 048
     Dates: start: 20221202, end: 20221227
  40. ETRUMADENANT [Suspect]
     Active Substance: ETRUMADENANT
     Dosage: 150 MG
     Route: 048
     Dates: start: 20230112, end: 20230124
  41. IBUPROFEN [Concomitant]
     Active Substance: IBUPROFEN
     Dosage: UNK
  42. LEVOTHYROXINE [Concomitant]
     Active Substance: LEVOTHYROXINE
     Dosage: UNK
     Dates: start: 20170913, end: 20230111
  43. NEURONTIN [Concomitant]
     Active Substance: GABAPENTIN
     Dosage: UNK
     Dates: start: 20171101
  44. LORATADINE [Concomitant]
     Active Substance: LORATADINE
     Dosage: UNK
     Dates: start: 20211114
  45. ACETAMINOPHEN\OXYCODONE HYDROCHLORIDE\OXYCODONE TEREPHTHALATE [Concomitant]
     Active Substance: ACETAMINOPHEN\OXYCODONE HYDROCHLORIDE\OXYCODONE TEREPHTHALATE
     Dosage: UNK
     Dates: start: 20220311
  46. ATIVAN [Concomitant]
     Active Substance: LORAZEPAM
     Dosage: UNK
     Dates: start: 20220311
  47. PROTONIX [Concomitant]
     Active Substance: PANTOPRAZOLE SODIUM
     Dosage: UNK
     Dates: start: 20220311
  48. IMODIUM [Concomitant]
     Active Substance: LOPERAMIDE HYDROCHLORIDE
     Dosage: UNK
     Dates: start: 20220315
  49. COLESTID [Concomitant]
     Active Substance: COLESTIPOL HYDROCHLORIDE
     Dosage: UNK
     Dates: start: 20220718
  50. POTASSIUM CHLORIDE 0.15% + GLUCOSE 5% [Concomitant]
     Dosage: UNK
     Dates: start: 20220621
  51. DECADRON [Concomitant]
     Active Substance: DEXAMETHASONE
     Dosage: UNK
     Dates: start: 20220727
  52. ZYPREXA [Concomitant]
     Active Substance: OLANZAPINE
     Dosage: UNK
     Dates: start: 20220727
  53. ADDERALL [Concomitant]
     Active Substance: AMPHETAMINE ASPARTATE\AMPHETAMINE SULFATE\DEXTROAMPHETAMINE SACCHARATE\DEXTROAMPHETAMINE SULFATE
     Dosage: UNK
     Dates: start: 20220831
  54. LOMOTIL [Concomitant]
     Active Substance: ATROPINE SULFATE\DIPHENOXYLATE HYDROCHLORIDE
     Dosage: UNK
     Dates: start: 20220315
  55. LOPERAMIDE HYDROCHLORIDE [Concomitant]
     Active Substance: LOPERAMIDE HYDROCHLORIDE
     Dosage: UNK
     Dates: start: 20220901
  56. COMPAZINE [Concomitant]
     Active Substance: PROCHLORPERAZINE MALEATE
     Indication: Prophylaxis
     Dosage: UNK
     Dates: start: 20220901, end: 20220901
  57. COMPAZINE [Concomitant]
     Active Substance: PROCHLORPERAZINE MALEATE
     Indication: Adverse event
  58. AMCAL PROCHLORPERAZINE [Concomitant]
     Dosage: UNK
     Dates: start: 20220908
  59. MS CONTIN [Concomitant]
     Active Substance: MORPHINE SULFATE
     Dosage: UNK
     Dates: start: 20220926
  60. MS CONTIN [Concomitant]
     Active Substance: MORPHINE SULFATE
     Dosage: UNK
     Dates: start: 20220726
  61. COLESTIPOL [Concomitant]
     Active Substance: COLESTIPOL
     Indication: Premedication
     Dosage: UNK
     Dates: start: 20220604, end: 20221111

REACTIONS (4)
  - Febrile neutropenia [Recovered/Resolved]
  - Hyponatraemia [Recovered/Resolved]
  - Diarrhoea [Recovered/Resolved]
  - Somnolence [Recovered/Resolved]

NARRATIVE: CASE EVENT DATE: 20220914
